FAERS Safety Report 6131052-9 (Version None)
Quarter: 2009Q1

REPORT INFORMATION
  Report Type: 
  Country: None (occurrence: None)
  Receive Date: 20090325
  Receipt Date: 20090323
  Transmission Date: 20090719
  Serious: Yes (Other)
  Sender: FDA-Public Use
  Company Number: TW-BRISTOL-MYERS SQUIBB COMPANY-14545669

PATIENT
  Age: 21 Month
  Sex: Male

DRUGS (5)
  1. CYCLOPHOSPHAMIDE [Suspect]
     Indication: RHABDOMYOSARCOMA
     Dosage: 1 DF = 2.2 G/M2 ON DAY 1.
  2. ETOPOSIDE [Suspect]
     Indication: RHABDOMYOSARCOMA
     Dosage: ON DAY 1-5.
  3. IFOSFAMIDE [Suspect]
     Indication: RHABDOMYOSARCOMA
     Dosage: 1 DF = 1.8 G/M2 ON DAY 1-5.
  4. VINCRISTINE [Suspect]
     Indication: RHABDOMYOSARCOMA
     Dosage: ON DAY 1.
  5. DACTINOMYCIN [Suspect]
     Indication: RHABDOMYOSARCOMA
     Dosage: ON DAY 1-5.

REACTIONS (3)
  - FEBRILE NEUTROPENIA [None]
  - PANCYTOPENIA [None]
  - VENOOCCLUSIVE LIVER DISEASE [None]
